FAERS Safety Report 6149670-0 (Version None)
Quarter: 2009Q2

REPORT INFORMATION
  Report Type: 
  Country: None (occurrence: None)
  Receive Date: 20090407
  Receipt Date: 20090326
  Transmission Date: 20091009
  Serious: Yes (Hospitalization)
  Sender: FDA-Public Use
  Company Number: 220001M09AUT

PATIENT
  Age: 6 Year
  Sex: Female
  Weight: 12.4 kg

DRUGS (3)
  1. SAIZEN [Suspect]
     Indication: GROWTH HORMONE DEFICIENCY
     Dosage: 0.4 MG, 1 IN 1 DAYS, SUBCUTANEOUS
     Route: 058
     Dates: start: 20080901
  2. SAIZEN [Suspect]
     Indication: PITUITARY HYPOPLASIA
     Dosage: 0.4 MG, 1 IN 1 DAYS, SUBCUTANEOUS
     Route: 058
     Dates: start: 20080901
  3. DEPAKENE [Concomitant]

REACTIONS (1)
  - OSTEOCHONDROSIS [None]
